FAERS Safety Report 19061592 (Version 2)
Quarter: 2021Q2

REPORT INFORMATION
  Report Type: Spontaneous
  Country: DE (occurrence: DE)
  Receive Date: 20210326
  Receipt Date: 20210407
  Transmission Date: 20210717
  Serious: Yes (Other)
  Sender: FDA-Public Use
  Company Number: NVSC2021DE060694

PATIENT
  Age: 55 Year
  Sex: Female

DRUGS (2)
  1. BEOVU [Suspect]
     Active Substance: BROLUCIZUMAB-DBLL
     Indication: NEOVASCULAR AGE-RELATED MACULAR DEGENERATION
     Dosage: UNK, QD (RIGHT EYE)
     Route: 065
     Dates: start: 20200430, end: 20200430
  2. BEOVU [Suspect]
     Active Substance: BROLUCIZUMAB-DBLL
     Dosage: UNK, QD (LEFT EYE)
     Route: 065
     Dates: start: 20200507, end: 20200507

REACTIONS (4)
  - Anterior chamber inflammation [Recovered/Resolved]
  - Vitreous haze [Recovered/Resolved]
  - Vitreous floaters [Recovered/Resolved]
  - Photopsia [Recovered/Resolved]

NARRATIVE: CASE EVENT DATE: 20200517
